FAERS Safety Report 9177978 (Version 1)
Quarter: 2012Q4

REPORT INFORMATION
  Report Type: 
  Country: JP (occurrence: JP)
  Receive Date: 20121016
  Receipt Date: 20121016
  Transmission Date: 20130627
  Serious: Yes (Other)
  Sender: FDA-Public Use
  Company Number: JP-BRACCO-006372

PATIENT
  Age: 63 Year
  Sex: Female
  Weight: 62 kg

DRUGS (11)
  1. PROHANCE [Suspect]
     Indication: METASTASES TO CENTRAL NERVOUS SYSTEM
     Route: 042
     Dates: start: 20120925, end: 20120925
  2. PROHANCE [Suspect]
     Indication: DIAGNOSTIC PROCEDURE
     Route: 042
     Dates: start: 20120925, end: 20120925
  3. HOKUNALIN [Concomitant]
     Route: 065
  4. PLETAAL [Concomitant]
     Route: 048
  5. HARNAL [Concomitant]
     Route: 048
  6. URSO [Concomitant]
     Route: 048
  7. PRIMPERAN [Concomitant]
     Route: 065
  8. MYSLEE [Concomitant]
     Route: 048
  9. MYONAL [Concomitant]
     Route: 048
  10. MOHRUS [Concomitant]
     Route: 062
  11. PARIET [Concomitant]
     Route: 048

REACTIONS (1)
  - Shock [Recovering/Resolving]
